FAERS Safety Report 7556361 (Version 3)
Quarter: 2012Q4

REPORT INFORMATION
  Report Type: 
  Country: DK (occurrence: DE)
  Receive Date: 20100827
  Receipt Date: 20121120
  Transmission Date: 20130627
  Serious: Yes (Other)
  Sender: FDA-Public Use
  Company Number: GB-SHIRE-SPV1-2010-01463

PATIENT
  Age: 70 Year
  Sex: Female

DRUGS (1)
  1. 426 (MIDODRINE) [Suspect]
     Indication: HYPOTENSION
     Dosage: 2.5 mg, 2x/day:bid
     Route: 048
     Dates: start: 20100610

REACTIONS (9)
  - Polyuria [Recovered/Resolved]
  - Anxiety [Recovered/Resolved]
  - Dizziness [Unknown]
  - Palpitations [Unknown]
  - Arrhythmia [Unknown]
  - Hypertension [Recovered/Resolved]
  - Restlessness [Recovered/Resolved]
  - Headache [Recovered/Resolved]
  - Nausea [Recovered/Resolved]
